FAERS Safety Report 14352419 (Version 3)
Quarter: 2018Q1

REPORT INFORMATION
  Report Type: Spontaneous
  Country: FI (occurrence: FI)
  Receive Date: 20180104
  Receipt Date: 20180216
  Transmission Date: 20180509
  Serious: Yes (Other)
  Sender: FDA-Public Use
  Company Number: PHHY2017FI197475

PATIENT
  Sex: Male

DRUGS (3)
  1. SANDIMMUN [Suspect]
     Active Substance: CYCLOSPORINE
     Dosage: UNK DRP, BID
     Route: 047
     Dates: start: 201711
  2. SANDIMMUN [Suspect]
     Active Substance: CYCLOSPORINE
     Indication: DRY EYE
     Dosage: UNK DRP, BID
     Route: 047
     Dates: start: 201608, end: 2017
  3. OFTAGEL [Concomitant]
     Active Substance: CARBOMER
     Indication: PRODUCT USED FOR UNKNOWN INDICATION
     Route: 065

REACTIONS (6)
  - Eye inflammation [Not Recovered/Not Resolved]
  - Scleritis [Not Recovered/Not Resolved]
  - Product use in unapproved indication [Unknown]
  - Episcleritis [Not Recovered/Not Resolved]
  - Ocular hyperaemia [Unknown]
  - Conjunctivitis [Unknown]

NARRATIVE: CASE EVENT DATE: 201710
